FAERS Safety Report 23454582 (Version 1)
Quarter: 2024Q1

REPORT INFORMATION
  Report Type: Spontaneous
  Country: US (occurrence: US)
  Receive Date: 20240130
  Receipt Date: 20240130
  Transmission Date: 20240410
  Serious: Yes (Disabling)
  Sender: FDA-Public Use
  Company Number: US-BEIGENE-BGN-2024-001122

PATIENT

DRUGS (1)
  1. BRUKINSA [Suspect]
     Active Substance: ZANUBRUTINIB
     Indication: Mantle cell lymphoma recurrent
     Dosage: 80 MILLIGRAM, BID
     Dates: start: 202105

REACTIONS (1)
  - Cystoid macular oedema [Recovered/Resolved with Sequelae]

NARRATIVE: CASE EVENT DATE: 20210501
